FAERS Safety Report 14386774 (Version 2)
Quarter: 2018Q3

REPORT INFORMATION
  Report Type: Spontaneous
  Country: US (occurrence: US)
  Receive Date: 20180115
  Receipt Date: 20180919
  Transmission Date: 20181010
  Serious: Yes (Other)
  Sender: FDA-Public Use
  Company Number: US-SA-2017SA116295

PATIENT
  Age: 62 Year
  Sex: Female
  Weight: 95.7 kg

DRUGS (19)
  1. HYDROCODONE [Concomitant]
     Active Substance: HYDROCODONE
  2. PROMETHAZINE [Concomitant]
     Active Substance: PROMETHAZINE\PROMETHAZINE HYDROCHLORIDE
  3. SAXAGLIPTIN [Concomitant]
     Active Substance: SAXAGLIPTIN
  4. DOCETAXEL. [Suspect]
     Active Substance: DOCETAXEL
     Dosage: 153 MG,QW
     Route: 042
     Dates: start: 20150813, end: 20150813
  5. GLYBURIDE. [Concomitant]
     Active Substance: GLYBURIDE
  6. DIPHENHYDRAMINE. [Concomitant]
     Active Substance: DIPHENHYDRAMINE
  7. FAMOTIDINE. [Concomitant]
     Active Substance: FAMOTIDINE
  8. DEXAMETHASONE. [Concomitant]
     Active Substance: DEXAMETHASONE
  9. ONDANSETRON [Concomitant]
     Active Substance: ONDANSETRON
  10. FOSAPREPITANT [Concomitant]
     Active Substance: FOSAPREPITANT
  11. AMLODIPINE [Concomitant]
     Active Substance: AMLODIPINE BESYLATE
  12. ACETYLSALICYLIC ACID [Concomitant]
     Active Substance: ASPIRIN
  13. LOSARTAN. [Concomitant]
     Active Substance: LOSARTAN
  14. METFORMIN [Concomitant]
     Active Substance: METFORMIN HYDROCHLORIDE
  15. DOCETAXEL. [Suspect]
     Active Substance: DOCETAXEL
     Indication: BREAST CANCER
     Dosage: 153 MG,QW
     Route: 042
     Dates: start: 20150601, end: 20150601
  16. NEOSAR [Concomitant]
     Active Substance: CYCLOPHOSPHAMIDE
  17. PALONOSETRON. [Concomitant]
     Active Substance: PALONOSETRON HYDROCHLORIDE
  18. FUROSEMIDE. [Concomitant]
     Active Substance: FUROSEMIDE
  19. POTASSIUM CHLORIDE. [Concomitant]
     Active Substance: POTASSIUM CHLORIDE

REACTIONS (4)
  - Alopecia [Recovering/Resolving]
  - Pain [Unknown]
  - Anxiety [Unknown]
  - Emotional distress [Unknown]

NARRATIVE: CASE EVENT DATE: 20150701
